FAERS Safety Report 9445125 (Version 1)
Quarter: 2013Q3

REPORT INFORMATION
  Report Type: Report from Study
  Country: US (occurrence: US)
  Receive Date: 20130807
  Receipt Date: 20130807
  Transmission Date: 20140515
  Serious: Yes (Hospitalization)
  Sender: FDA-Public Use
  Company Number: US-GLAXOSMITHKLINE-A1036518A

PATIENT
  Age: 70 Year
  Sex: Female
  Weight: 87.5 kg

DRUGS (16)
  1. OFATUMUMAB [Suspect]
     Indication: CHRONIC LYMPHOCYTIC LEUKAEMIA
     Dosage: 1000MG WEEKLY
     Dates: start: 20130718
  2. METHYLPREDNISOLONE [Suspect]
     Indication: CHRONIC LYMPHOCYTIC LEUKAEMIA
     Dosage: 1000MG CYCLIC
     Dates: start: 20130718
  3. ACYCLOVIR [Concomitant]
  4. ALLOPURINOL [Concomitant]
  5. FAMOTIDINE [Concomitant]
  6. LEVOFLOXACIN [Concomitant]
  7. LORAZEPAM [Concomitant]
  8. MULTIVITAMIN [Concomitant]
  9. SINGULAR [Concomitant]
  10. SYNTHROID [Concomitant]
  11. TRIMETHOPRIM SULFATE [Concomitant]
  12. VORICONAZOLE [Concomitant]
  13. ZYFLO [Concomitant]
  14. ZYRTEC [Concomitant]
  15. BENADRYL [Concomitant]
  16. SOLUMEDROL [Concomitant]
     Route: 042

REACTIONS (1)
  - Prophylaxis [Unknown]
